FAERS Safety Report 9189036 (Version 2)
Quarter: 2013Q2

REPORT INFORMATION
  Report Type: Spontaneous
  Country: JP (occurrence: JP)
  Receive Date: 20130326
  Receipt Date: 20130603
  Transmission Date: 20140414
  Serious: Yes (Death, Other)
  Sender: FDA-Public Use
  Company Number: JP-BRISTOL-MYERS SQUIBB COMPANY-18701656

PATIENT
  Age: 35 Year
  Sex: Male

DRUGS (3)
  1. ABILIFY DISCMELT TABS [Suspect]
     Indication: SCHIZOPHRENIA
     Dosage: PRODUCT STRENGTH IS 3MG?DOSE 6MG ALSO TKN?06NOV09-10JAN13;?11JAN13-28FEB13
     Route: 048
     Dates: start: 20091106
  2. TRIAZOLAM [Concomitant]
     Dosage: TAB
     Dates: start: 20091106, end: 20130228
  3. FLUNITRAZEPAM [Concomitant]
     Dosage: TAB
     Dates: start: 20091106, end: 20130228

REACTIONS (5)
  - Death [Fatal]
  - Myocardial ischaemia [Unknown]
  - Chest discomfort [Unknown]
  - Dysphoria [Unknown]
  - Pollakiuria [Recovered/Resolved]
